FAERS Safety Report 7333354-7 (Version None)
Quarter: 2011Q1

REPORT INFORMATION
  Report Type: 
  Country: None (occurrence: None)
  Receive Date: 20110304
  Receipt Date: 20110223
  Transmission Date: 20110831
  Serious: Yes (Hospitalization)
  Sender: FDA-Public Use
  Company Number: CH-NAPPMUNDI-DEU-2011-0007049

PATIENT
  Sex: Female

DRUGS (1)
  1. MS CONTIN [Suspect]
     Indication: PAIN
     Dosage: 200 MG, UNK
     Dates: start: 20110201, end: 20110201

REACTIONS (5)
  - RESPIRATORY DEPRESSION [None]
  - DRUG DISPENSING ERROR [None]
  - DRUG LABEL CONFUSION [None]
  - SOMNOLENCE [None]
  - OVERDOSE [None]
